FAERS Safety Report 7893944-X (Version None)
Quarter: 2011Q4

REPORT INFORMATION
  Report Type: 
  Country: None (occurrence: None)
  Receive Date: 20111104
  Receipt Date: 20111025
  Transmission Date: 20120403
  Serious: Yes (Other)
  Sender: FDA-Public Use
  Company Number: BR-COVIDIEN/TYCO HEALTHCARE/MALLINCKRODT-T201102327

PATIENT
  Age: 50 Year
  Sex: Female
  Weight: 88 kg

DRUGS (6)
  1. EXALGO [Suspect]
     Indication: ANALGESIC THERAPY
     Dosage: 8 MG, BID
     Route: 048
     Dates: start: 20110801
  2. SOTALOL HYDROCHLORIDE [Concomitant]
     Indication: HYPERTENSION
     Dosage: 25 MG, UNK
     Dates: start: 20100101
  3. SOTALOL HYDROCHLORIDE [Concomitant]
     Indication: ARRHYTHMIA
  4. SLOW-K [Concomitant]
     Dosage: UNK
  5. PAMELOR [Concomitant]
     Indication: DEPRESSION
     Dosage: 25 MG, TOOK ONLY 6 TABLETS
  6. SYNTHROID [Concomitant]
     Indication: THYROID DISORDER
     Dosage: 75 MG, UNK

REACTIONS (10)
  - SOMNAMBULISM [None]
  - PSYCHIATRIC SYMPTOM [None]
  - PARANOIA [None]
  - HAEMORRHOIDS [None]
  - CONSTIPATION [None]
  - WEIGHT INCREASED [None]
  - EYE SWELLING [None]
  - NIGHTMARE [None]
  - FEAR [None]
  - OEDEMA PERIPHERAL [None]
